FAERS Safety Report 26058258 (Version 1)
Quarter: 2025Q4

REPORT INFORMATION
  Report Type: Spontaneous
  Country: US (occurrence: US)
  Receive Date: 20251118
  Receipt Date: 20251118
  Transmission Date: 20260118
  Serious: No
  Sender: TARO
  Company Number: US-TARO PHARMACEUTICALS USA INC.-2025TAR00953

PATIENT

DRUGS (1)
  1. TRIAMCINOLONE ACETONIDE [Suspect]
     Active Substance: TRIAMCINOLONE ACETONIDE
     Indication: Toothache
     Dosage: 3 DAYS, SOME
     Route: 048
     Dates: start: 20250227, end: 20250301

REACTIONS (2)
  - Discomfort [Recovered/Resolved]
  - Product physical issue [Unknown]
